FAERS Safety Report 5699386-X (Version None)
Quarter: 2008Q2

REPORT INFORMATION
  Report Type: 
  Country: None (occurrence: None)
  Receive Date: 20080407
  Receipt Date: 20080401
  Transmission Date: 20081010
  Serious: Yes (Life-Threatening)
  Sender: FDA-Public Use
  Company Number: 163-C5013-08040107

PATIENT
  Age: 77 Year
  Sex: Male
  Weight: 98.4 kg

DRUGS (1)
  1. CC-5013 (LENALIDOMIDE) (CAPSULES) [Suspect]
     Indication: MULTIPLE MYELOMA
     Dosage: 15 MG, DAYS 1-21, ORAL
     Route: 048
     Dates: start: 20051130, end: 20080116

REACTIONS (5)
  - CHOLECYSTITIS ACUTE [None]
  - DISEASE PROGRESSION [None]
  - KARYOTYPE ANALYSIS ABNORMAL [None]
  - MYELODYSPLASTIC SYNDROME [None]
  - PNEUMONIA [None]
